FAERS Safety Report 5503496-7 (Version None)
Quarter: 2007Q4

REPORT INFORMATION
  Report Type: 
  Country: None (occurrence: None)
  Receive Date: 20071031
  Receipt Date: 20071017
  Transmission Date: 20080405
  Serious: Yes (Hospitalization)
  Sender: FDA-Public Use
  Company Number: GR-GENENTECH-249760

PATIENT
  Age: 75 Year
  Sex: Male

DRUGS (2)
  1. LUCENTIS [Suspect]
     Indication: DRUG USE FOR UNKNOWN INDICATION
  2. ANTIHYPERTENSIVE AGENTS [Concomitant]
     Indication: DRUG USE FOR UNKNOWN INDICATION

REACTIONS (3)
  - EYE INFLAMMATION [None]
  - VISUAL ACUITY REDUCED [None]
  - VITREOUS OPACITIES [None]
